FAERS Safety Report 8282269-9 (Version None)
Quarter: 2012Q2

REPORT INFORMATION
  Report Type: 
  Country: None (occurrence: None)
  Receive Date: 20120413
  Receipt Date: 20120403
  Transmission Date: 20120825
  Serious: Yes (Other)
  Sender: FDA-Public Use
  Company Number: AU-JNJFOC-20120403211

PATIENT
  Age: 54 Year
  Sex: Female

DRUGS (2)
  1. INVEGA [Suspect]
     Indication: PRODUCT USED FOR UNKNOWN INDICATION
     Route: 048
     Dates: start: 20090915
  2. ZOLOFT [Concomitant]
     Route: 065

REACTIONS (2)
  - APATHY [None]
  - MEMORY IMPAIRMENT [None]
